FAERS Safety Report 18404357 (Version 1)
Quarter: 2020Q4

REPORT INFORMATION
  Report Type: Spontaneous
  Country: IT (occurrence: IT)
  Receive Date: 20201020
  Receipt Date: 20201020
  Transmission Date: 20210114
  Serious: Yes (Other)
  Sender: FDA-Public Use
  Company Number: IT-SA-2020SA293130

PATIENT

DRUGS (1)
  1. FERLIXIT [Suspect]
     Active Substance: SODIUM FERRIC GLUCONATE COMPLEX
     Indication: IRON DEFICIENCY ANAEMIA
     Route: 042

REACTIONS (2)
  - Iron deficiency anaemia [Unknown]
  - Haematemesis [Unknown]

NARRATIVE: CASE EVENT DATE: 20200924
